FAERS Safety Report 4637946-5 (Version None)
Quarter: 2005Q2

REPORT INFORMATION
  Report Type: 
  Country: None (occurrence: None)
  Receive Date: 20050418
  Receipt Date: 20050404
  Transmission Date: 20051028
  Serious: Yes (Hospitalization)
  Sender: FDA-Public Use
  Company Number: US-KINGPHARMUSA00001-K200500473

PATIENT
  Age: 24 Year
  Sex: Male

DRUGS (8)
  1. SEPTRA [Suspect]
     Dosage: 1 UNK, QD
  2. ATAZANAVIR [Suspect]
     Indication: HIV INFECTION
     Dosage: 300 MG, QD
     Route: 048
     Dates: start: 20030704
  3. DIDANOSINE [Suspect]
     Indication: HIV INFECTION
     Dosage: 250 MG, QD
     Dates: start: 20030704
  4. KALETRA [Suspect]
     Indication: HIV INFECTION
     Dosage: 3 UNK, BID
     Dates: start: 20030704
  5. LAMIVUDINE [Suspect]
     Indication: HIV INFECTION
     Dosage: 150 MG, BID
     Dates: start: 20030704
  6. TENOFOVIR [Suspect]
     Indication: HIV INFECTION
     Dosage: 300 MG, QD
     Dates: start: 20030704
  7. AZITHROMYCIN [Suspect]
     Dosage: 600 MG, QD
     Dates: start: 20031205
  8. ETHAMBUTOL HCL [Suspect]
     Indication: MYCOBACTERIUM AVIUM COMPLEX INFECTION
     Dosage: 800 MG, QD
     Dates: start: 20031205

REACTIONS (11)
  - ABDOMINAL DISTENSION [None]
  - ABDOMINAL PAIN [None]
  - GASTRITIS [None]
  - HEPATOMEGALY [None]
  - ILEUS PARALYTIC [None]
  - LYMPHADENOPATHY [None]
  - MYCOBACTERIUM AVIUM COMPLEX INFECTION [None]
  - NAUSEA [None]
  - PAIN [None]
  - VOMITING [None]
  - WEIGHT DECREASED [None]
